FAERS Safety Report 4891196-6 (Version None)
Quarter: 2006Q1

REPORT INFORMATION
  Report Type: 
  Country: None (occurrence: None)
  Receive Date: 20060125
  Receipt Date: 20060115
  Transmission Date: 20060701
  Serious: Yes (Hospitalization)
  Sender: FDA-Public Use
  Company Number: JP-JPN-A200600189

PATIENT
  Age: 22 Year
  Sex: Female

DRUGS (4)
  1. FLOLAN [Suspect]
     Indication: PULMONARY HYPERTENSION
     Route: 042
     Dates: start: 20010716
  2. WARFARIN [Suspect]
     Route: 048
  3. MERCAZOLE [Concomitant]
     Route: 048
  4. PROPACIL [Concomitant]
     Route: 048

REACTIONS (2)
  - HAEMOPTYSIS [None]
  - HYPERTHYROIDISM [None]
